FAERS Safety Report 7683291-3 (Version None)
Quarter: 2011Q3

REPORT INFORMATION
  Report Type: 
  Country: None (occurrence: None)
  Receive Date: 20110815
  Receipt Date: 20110802
  Transmission Date: 20111222
  Serious: Yes (Hospitalization)
  Sender: FDA-Public Use
  Company Number: US-VIIV HEALTHCARE LIMITED-A0939392A

PATIENT
  Age: 53 Year
  Sex: Female

DRUGS (11)
  1. AMITRIPTYLINE HCL [Concomitant]
  2. ALLEGRA D 24 HOUR [Concomitant]
  3. TRIZIVIR [Suspect]
     Indication: PRODUCT USED FOR UNKNOWN INDICATION
     Route: 065
     Dates: start: 20000101, end: 20050101
  4. ALPRAZOLAM [Concomitant]
  5. FAMCICLOVIR [Concomitant]
  6. EPIVIR [Concomitant]
  7. HYDROCHLOROTHIAZIDE [Concomitant]
  8. ZIAGEN [Suspect]
     Indication: PRODUCT USED FOR UNKNOWN INDICATION
     Dosage: 300MG TWICE PER DAY
     Route: 048
     Dates: start: 20000101, end: 20050101
  9. AMLODIPINE [Concomitant]
  10. INTELENCE [Concomitant]
  11. NASONEX [Concomitant]

REACTIONS (7)
  - DRUG RESISTANCE [None]
  - DIABETES MELLITUS [None]
  - HYPERTENSION [None]
  - BLOOD CHOLESTEROL INCREASED [None]
  - PALPITATIONS [None]
  - DRUG INEFFECTIVE [None]
  - BLOOD TRIGLYCERIDES INCREASED [None]
